FAERS Safety Report 10224928 (Version 3)
Quarter: 2014Q3

REPORT INFORMATION
  Report Type: Spontaneous
  Country: US (occurrence: US)
  Receive Date: 20140609
  Receipt Date: 20140923
  Transmission Date: 20150326
  Serious: Yes (Other)
  Sender: FDA-Public Use
  Company Number: US-BAYER-2014-081537

PATIENT
  Age: 81 Year
  Sex: Male
  Weight: 54.42 kg

DRUGS (1)
  1. BAYER CHEWABLE LOW DOSE ASPIRIN ORANGE FLAVORED [Suspect]
     Active Substance: ASPIRIN
     Indication: HYPERTENSION
     Dosage: 1 DF, ONCE, 36S
     Route: 048
     Dates: start: 20140529, end: 20140529

REACTIONS (7)
  - Lethargy [Recovered/Resolved]
  - Drug administration error [None]
  - Blood urine present [Recovered/Resolved]
  - Blood pressure diastolic decreased [Recovered/Resolved]
  - Hypotension [Unknown]
  - Dizziness [Recovered/Resolved]
  - Hallucination [Recovered/Resolved]

NARRATIVE: CASE EVENT DATE: 20140529
